FAERS Safety Report 15491054 (Version 1)
Quarter: 2018Q4

REPORT INFORMATION
  Report Type: Report from Study
  Country: CO (occurrence: CO)
  Receive Date: 20181012
  Receipt Date: 20181012
  Transmission Date: 20190205
  Serious: Yes (Hospitalization, Other)
  Sender: FDA-Public Use
  Company Number: CO-ASTELLAS-2018US043848

PATIENT
  Age: 38 Year
  Sex: Male

DRUGS (2)
  1. TACROLIMUS. [Suspect]
     Active Substance: TACROLIMUS
     Indication: RENAL TRANSPLANT
     Dosage: 4 MG (1 CAPSULE OF 5 MG AND 4 CAPSULES OF 1 MG), ONCE DAILY
     Route: 048
     Dates: start: 20081207
  2. TACROLIMUS. [Suspect]
     Active Substance: TACROLIMUS
     Indication: RENAL TRANSPLANT
     Dosage: 5 MG (1 CAPSULE OF 5 MG AND 4 CAPSULES OF 1 MG), ONCE DAILY
     Route: 048
     Dates: start: 20081207

REACTIONS (2)
  - Cholelithiasis [Unknown]
  - Blood creatinine increased [Unknown]

NARRATIVE: CASE EVENT DATE: 20181003
